FAERS Safety Report 13367632 (Version 1)
Quarter: 2017Q1

REPORT INFORMATION
  Report Type: Spontaneous
  Country: GB (occurrence: GB)
  Receive Date: 20170324
  Receipt Date: 20170324
  Transmission Date: 20170429
  Serious: Yes (Hospitalization)
  Sender: FDA-Public Use
  Company Number: GB-BAYER-2017-053036

PATIENT
  Sex: Female

DRUGS (1)
  1. MIRENA [Suspect]
     Active Substance: LEVONORGESTREL
     Indication: INTRA-UTERINE CONTRACEPTIVE DEVICE
     Dosage: DAILY DOSE 20 ?G
     Route: 015
     Dates: start: 201501, end: 20170111

REACTIONS (3)
  - Fallopian tube disorder [Recovered/Resolved with Sequelae]
  - Ectopic pregnancy with contraceptive device [Unknown]
  - Internal haemorrhage [Unknown]

NARRATIVE: CASE EVENT DATE: 201701
